FAERS Safety Report 7537803-0 (Version None)
Quarter: 2011Q2

REPORT INFORMATION
  Report Type: 
  Country: None (occurrence: None)
  Receive Date: 20110609
  Receipt Date: 20110525
  Transmission Date: 20111010
  Serious: No
  Sender: FDA-Public Use
  Company Number: US-B.I. PHARMACEUTICALS,INC./RIDGEFIELD-2011-BP-13996BP

PATIENT
  Age: 67 Year
  Sex: Female

DRUGS (6)
  1. TRAMADOL HCL [Concomitant]
     Dosage: 150 MG
  2. NAPROXEN [Concomitant]
     Dosage: 375 MG
  3. BIAXIN [Concomitant]
     Dosage: 1000 MG
  4. MOBIC [Concomitant]
     Dosage: 7.5 MG
  5. DUONEB [Concomitant]
  6. COMBIVENT [Suspect]
     Dosage: 8 PUF
     Route: 055
     Dates: start: 20110201

REACTIONS (1)
  - BURNING SENSATION [None]
